FAERS Safety Report 26000642 (Version 1)
Quarter: 2025Q4

REPORT INFORMATION
  Report Type: Spontaneous
  Country: US (occurrence: None)
  Receive Date: 20251104
  Receipt Date: 20251104
  Transmission Date: 20260118
  Serious: No
  Sender: FDA-CTU
  Company Number: None

PATIENT
  Sex: Female

DRUGS (4)
  1. NUCALA [Suspect]
     Active Substance: MEPOLIZUMAB
     Indication: Hypereosinophilic syndrome
     Dosage: 300 MG EVERY 28 DAYS SUBCUTANEOUS?
     Route: 058
     Dates: start: 20251007
  2. ALCOHOL [Suspect]
     Active Substance: ALCOHOL
  3. CRAB [Suspect]
     Active Substance: CRAB LEG, UNSPECIFIED
  4. OYSTER, UNSPECIFIED [Suspect]
     Active Substance: OYSTER, UNSPECIFIED

REACTIONS (1)
  - Urticaria [None]
